FAERS Safety Report 4923662-9 (Version None)
Quarter: 2006Q1

REPORT INFORMATION
  Report Type: 
  Country: None (occurrence: None)
  Receive Date: 20060227
  Receipt Date: 20030605
  Transmission Date: 20060701
  Serious: Yes (Hospitalization, Disabling)
  Sender: FDA-Public Use
  Company Number: US-MERCK-0306USA00848

PATIENT
  Age: 50 Year
  Sex: Female
  Weight: 82 kg

DRUGS (14)
  1. HYDROCHLOROTHIAZIDE [Concomitant]
     Route: 065
  2. NORVASC [Concomitant]
     Route: 065
  3. NAPROSYN [Concomitant]
     Route: 065
  4. NAPROSYN [Concomitant]
     Route: 065
  5. VIOXX [Suspect]
     Indication: NECK PAIN
     Route: 048
     Dates: start: 20000801, end: 20000101
  6. VIOXX [Suspect]
     Route: 048
     Dates: start: 20030509
  7. VIOXX [Suspect]
     Route: 048
     Dates: start: 20000907, end: 20001004
  8. VIOXX [Suspect]
     Route: 048
     Dates: start: 20000101, end: 20000906
  9. VIOXX [Suspect]
     Route: 048
     Dates: start: 20001005
  10. VIOXX [Suspect]
     Indication: SHOULDER PAIN
     Route: 048
     Dates: start: 20000801, end: 20000101
  11. VIOXX [Suspect]
     Route: 048
     Dates: start: 20030509
  12. VIOXX [Suspect]
     Route: 048
     Dates: start: 20000907, end: 20001004
  13. VIOXX [Suspect]
     Route: 048
     Dates: start: 20000101, end: 20000906
  14. VIOXX [Suspect]
     Route: 048
     Dates: start: 20001005

REACTIONS (28)
  - ADVERSE EVENT [None]
  - AMENORRHOEA [None]
  - ANXIETY DISORDER [None]
  - BLOOD PRESSURE INCREASED [None]
  - BREAST LUMP REMOVAL [None]
  - BREAST PAIN [None]
  - CAROTID ARTERY DISEASE [None]
  - CHEST PAIN [None]
  - DEPRESSION [None]
  - DIARRHOEA [None]
  - DYSLIPIDAEMIA [None]
  - FOOD POISONING [None]
  - GASTRITIS [None]
  - GASTROOESOPHAGEAL REFLUX DISEASE [None]
  - HEADACHE [None]
  - HYPERTENSION [None]
  - HYPERTENSIVE CRISIS [None]
  - MUSCLE SPASMS [None]
  - NECK INJURY [None]
  - OEDEMA [None]
  - OSTEOARTHRITIS [None]
  - PAIN IN EXTREMITY [None]
  - PALPITATIONS [None]
  - RASH ERYTHEMATOUS [None]
  - SEDATION [None]
  - SOMNOLENCE [None]
  - TRANSIENT ISCHAEMIC ATTACK [None]
  - UPPER RESPIRATORY TRACT INFECTION [None]
